FAERS Safety Report 12546008 (Version 2)
Quarter: 2017Q3

REPORT INFORMATION
  Report Type: Spontaneous
  Country: US (occurrence: US)
  Receive Date: 20160711
  Receipt Date: 20170707
  Transmission Date: 20171127
  Serious: No
  Sender: FDA-Public Use
  Company Number: US-JNJFOC-20160701693

PATIENT
  Age: 18 Year
  Sex: Male

DRUGS (5)
  1. RISPERDAL [Suspect]
     Active Substance: RISPERIDONE
     Indication: SCHIZOPHRENIA
     Route: 048
     Dates: start: 200901, end: 200912
  2. RISPERDAL [Suspect]
     Active Substance: RISPERIDONE
     Indication: SCHIZOPHRENIA
     Route: 048
     Dates: start: 2009, end: 2016
  3. RISPERDAL [Suspect]
     Active Substance: RISPERIDONE
     Indication: SCHIZOPHRENIA
     Route: 048
     Dates: end: 201603
  4. RISPERDAL [Suspect]
     Active Substance: RISPERIDONE
     Indication: SCHIZOPHRENIA
     Route: 048
     Dates: start: 2004, end: 2009
  5. INVEGA [Suspect]
     Active Substance: PALIPERIDONE
     Indication: SCHIZOPHRENIA
     Route: 048
     Dates: start: 200901, end: 200912

REACTIONS (3)
  - Weight increased [Unknown]
  - Gynaecomastia [Unknown]
  - Galactorrhoea [Unknown]

NARRATIVE: CASE EVENT DATE: 200712
